FAERS Safety Report 17885300 (Version 1)
Quarter: 2020Q2

REPORT INFORMATION
  Report Type: Spontaneous
  Country: CA (occurrence: CA)
  Receive Date: 20200611
  Receipt Date: 20200611
  Transmission Date: 20200714
  Serious: Yes (Other)
  Sender: FDA-Public Use
  Company Number: CA-TARO-2020TAR01024

PATIENT
  Age: 13 Year
  Sex: Female

DRUGS (2)
  1. BETADERM [Suspect]
     Active Substance: BETAMETHASONE VALERATE
     Indication: SKIN IRRITATION
     Dosage: UNK UNK, BID
     Route: 061
     Dates: start: 2020, end: 20200521
  2. BETADERM [Suspect]
     Active Substance: BETAMETHASONE VALERATE
     Indication: PRURITUS

REACTIONS (5)
  - Discomfort [Unknown]
  - Burning sensation [Unknown]
  - Scar [Unknown]
  - Skin exfoliation [Unknown]
  - Product physical consistency issue [Unknown]

NARRATIVE: CASE EVENT DATE: 2020
